FAERS Safety Report 15612718 (Version 1)
Quarter: 2018Q4

REPORT INFORMATION
  Report Type: Spontaneous
  Country: US (occurrence: US)
  Receive Date: 20181113
  Receipt Date: 20181113
  Transmission Date: 20190205
  Serious: No
  Sender: FDA-Public Use
  Company Number: US-SUNOVION-2018SUN004340

PATIENT
  Age: 32 Year
  Sex: Male
  Weight: 90.7 kg

DRUGS (1)
  1. LATUDA [Suspect]
     Active Substance: LURASIDONE HYDROCHLORIDE
     Indication: BIPOLAR DISORDER
     Dosage: 40 MG, QD
     Route: 048
     Dates: end: 201810

REACTIONS (5)
  - Anhedonia [Unknown]
  - Skin laceration [Unknown]
  - Depression [Unknown]
  - Apathy [Unknown]
  - Skin infection [Unknown]

NARRATIVE: CASE EVENT DATE: 201810
